FAERS Safety Report 19981022 (Version 1)
Quarter: 2021Q4

REPORT INFORMATION
  Report Type: Spontaneous
  Country: US (occurrence: US)
  Receive Date: 20211021
  Receipt Date: 20211021
  Transmission Date: 20220303
  Serious: No
  Sender: FDA-Public Use
  Company Number: US-PFIZER INC-2020456876

PATIENT
  Age: 70 Year
  Sex: Female

DRUGS (1)
  1. LYRICA [Suspect]
     Active Substance: PREGABALIN
     Indication: Neuropathy peripheral
     Dosage: 225 MG, 2X/DAY
     Route: 048

REACTIONS (2)
  - Laryngitis [Unknown]
  - Mutism [Unknown]
